FAERS Safety Report 9393926 (Version 1)
Quarter: 2013Q3

REPORT INFORMATION
  Report Type: Report from Study
  Country: FR (occurrence: FR)
  Receive Date: 20130710
  Receipt Date: 20130710
  Transmission Date: 20140515
  Serious: Yes (Hospitalization)
  Sender: FDA-Public Use
  Company Number: FR-009507513-1010FRA00100

PATIENT
  Age: 69 Year
  Sex: Male
  Weight: 87 kg

DRUGS (7)
  1. SITAGLIPTIN PHOSPHATE [Suspect]
     Indication: TYPE 2 DIABETES MELLITUS
     Dosage: 100 MG, QD
     Route: 048
     Dates: start: 20091023, end: 20101130
  2. SITAGLIPTIN PHOSPHATE [Suspect]
     Dosage: 100 MG, QD
     Route: 048
     Dates: start: 20110513
  3. METFORMIN [Concomitant]
     Indication: TYPE 2 DIABETES MELLITUS
     Dosage: 850 MG, TID
     Route: 048
     Dates: end: 20100308
  4. LEVEMIR [Concomitant]
     Indication: TYPE 2 DIABETES MELLITUS
     Dosage: 58 IU, QD
     Route: 058
     Dates: start: 20100116
  5. NOVO-NORM [Concomitant]
     Indication: TYPE 2 DIABETES MELLITUS
     Dosage: 4 MG, QD
     Route: 048
     Dates: start: 20100309, end: 20101130
  6. LERCANIDIPINE [Concomitant]
     Indication: HYPERTENSION
     Dosage: 1 DF, UNKNOWN
  7. ENALAPRIL/HCT [Concomitant]
     Indication: HYPERTENSION
     Dosage: 1 DF, UNKNOWN

REACTIONS (4)
  - Lung disorder [Recovered/Resolved]
  - Asthma [Recovered/Resolved]
  - Bronchitis [Recovered/Resolved]
  - Erysipelas [Recovered/Resolved]
